FAERS Safety Report 22313811 (Version 3)
Quarter: 2024Q1

REPORT INFORMATION
  Report Type: Spontaneous
  Country: CA (occurrence: CA)
  Receive Date: 20230512
  Receipt Date: 20240227
  Transmission Date: 20240410
  Serious: Yes (Other)
  Sender: FDA-Public Use
  Company Number: CA-PFIZER INC-202201053751

PATIENT
  Age: 68 Year
  Sex: Male

DRUGS (3)
  1. ABRILADA [Suspect]
     Active Substance: ADALIMUMAB-AFZB
     Indication: Crohn^s disease
     Dosage: 40 MG, 2X/WEEK
     Dates: start: 20220516, end: 2023
  2. ERLEADA [Concomitant]
     Active Substance: APALUTAMIDE
     Indication: Neoplasm malignant
     Dosage: UNK ( 6 MONTHS )
  3. ELIGARD [Concomitant]
     Active Substance: LEUPROLIDE ACETATE
     Dosage: UNK (RESTARTED )
     Dates: start: 202204

REACTIONS (2)
  - Metastasis [Not Recovered/Not Resolved]
  - Off label use [Unknown]
